FAERS Safety Report 9808592 (Version 1)
Quarter: 2014Q1

REPORT INFORMATION
  Report Type: Spontaneous
  Country: US (occurrence: US)
  Receive Date: 20140110
  Receipt Date: 20140110
  Transmission Date: 20141002
  Serious: No
  Sender: FDA-Public Use
  Company Number: US-PFIZER INC-2014005151

PATIENT
  Age: 58 Year
  Sex: Female
  Weight: 55.33 kg

DRUGS (1)
  1. PREMPRO [Suspect]
     Indication: MENOPAUSAL SYMPTOMS
     Dosage: 0.625 MG, 1X/DAY
     Route: 048
     Dates: end: 2000

REACTIONS (4)
  - Feeling abnormal [Recovered/Resolved]
  - Emotional disorder [Recovered/Resolved]
  - General physical condition abnormal [Recovered/Resolved]
  - Asthenia [Recovered/Resolved]
